FAERS Safety Report 4891049-3 (Version None)
Quarter: 2006Q1

REPORT INFORMATION
  Report Type: 
  Country: None (occurrence: None)
  Receive Date: 20060125
  Receipt Date: 20051128
  Transmission Date: 20060701
  Serious: Yes (Other)
  Sender: FDA-Public Use
  Company Number: PHEH2005US12929

PATIENT
  Age: 74 Year
  Sex: Female
  Weight: 56.235 kg

DRUGS (6)
  1. MIACALCIN [Suspect]
     Indication: OSTEOPOROSIS
     Dosage: 200 IU, QD
     Dates: start: 20050601
  2. ACTONEL [Concomitant]
  3. VITAMINS NOS [Concomitant]
  4. PRED FORTE [Suspect]
  5. OS-CAL [Concomitant]
  6. VITAMIN D [Concomitant]

REACTIONS (10)
  - ALOPECIA [None]
  - AMNESIA [None]
  - CATARACT [None]
  - CATARACT OPERATION [None]
  - DEPRESSION [None]
  - FATIGUE [None]
  - HAIR COLOUR CHANGES [None]
  - HAIR TEXTURE ABNORMAL [None]
  - INSOMNIA [None]
  - VISION BLURRED [None]
